FAERS Safety Report 12730686 (Version 1)
Quarter: 2016Q3

REPORT INFORMATION
  Report Type: Spontaneous
  Country: US (occurrence: US)
  Receive Date: 20160910
  Receipt Date: 20160910
  Transmission Date: 20161109
  Serious: No
  Sender: FDA-Public Use
  Company Number: US-ASTRAZENECA-2016SE92882

PATIENT
  Age: 67 Year
  Sex: Female

DRUGS (1)
  1. PRILOSEC [Suspect]
     Active Substance: OMEPRAZOLE MAGNESIUM
     Indication: DYSPEPSIA
     Route: 048

REACTIONS (6)
  - Drug effect decreased [Unknown]
  - Product physical issue [Unknown]
  - Dyspepsia [Recovering/Resolving]
  - Suspected counterfeit product [Unknown]
  - Reaction to drug excipients [Unknown]
  - Condition aggravated [Recovering/Resolving]
